FAERS Safety Report 12981448 (Version 1)
Quarter: 2016Q4

REPORT INFORMATION
  Report Type: Spontaneous
  Country: IN (occurrence: IN)
  Receive Date: 20161129
  Receipt Date: 20161129
  Transmission Date: 20170207
  Serious: Yes (Hospitalization)
  Sender: FDA-Public Use
  Company Number: IN-ALEMBIC PHARMACUETICALS LIMITED-2016SCAL000955

PATIENT

DRUGS (9)
  1. MODAFINIL. [Suspect]
     Active Substance: MODAFINIL
     Dosage: 100 MG, EVERY TWO DAYS (SLOW REDUCTION)
  2. CARBAMAZEPINE. [Concomitant]
     Active Substance: CARBAMAZEPINE
     Indication: AFFECTIVE DISORDER
     Dosage: 800 MG, QD
  3. MODAFINIL. [Suspect]
     Active Substance: MODAFINIL
     Dosage: 800-1,000 MG/DAY
  4. VENLAFAXINE [Concomitant]
     Active Substance: VENLAFAXINE HYDROCHLORIDE
     Indication: AFFECTIVE DISORDER
     Dosage: 150 MG, QD
  5. MODAFINIL. [Suspect]
     Active Substance: MODAFINIL
     Dosage: 400 MG, QD (INCREASED DOSE ON HIS OWN)
  6. LAMOTRIGINE. [Concomitant]
     Active Substance: LAMOTRIGINE
     Indication: AFFECTIVE DISORDER
     Dosage: 200 MG, QD
  7. MODAFINIL. [Suspect]
     Active Substance: MODAFINIL
     Indication: BIPOLAR DISORDER
     Dosage: 200 MG, QD (100 MG AT MORNING AND AFTERNOON)
  8. LITHIUM. [Concomitant]
     Active Substance: LITHIUM
     Indication: AFFECTIVE DISORDER
     Dosage: 600 MG, QD
  9. MODAFINIL. [Suspect]
     Active Substance: MODAFINIL
     Dosage: ESCALATED THE DOSE TO 400-600 MG/DAY
     Dates: start: 2010, end: 2012

REACTIONS (3)
  - Drug dependence [Recovering/Resolving]
  - Withdrawal syndrome [Recovering/Resolving]
  - Hypersexuality [Recovering/Resolving]
